FAERS Safety Report 22307527 (Version 1)
Quarter: 2023Q2

REPORT INFORMATION
  Report Type: Report from Study
  Country: CA (occurrence: CA)
  Receive Date: 20230511
  Receipt Date: 20230511
  Transmission Date: 20230721
  Serious: Yes (Other)
  Sender: FDA-Public Use
  Company Number: CA-002147023-NVSC2023CA073853

PATIENT
  Age: 40 Year
  Sex: Female

DRUGS (1)
  1. ELTROMBOPAG OLAMINE [Suspect]
     Active Substance: ELTROMBOPAG OLAMINE
     Indication: Immune thrombocytopenia
     Dosage: 25 MG, QD
     Route: 048
     Dates: start: 20230227

REACTIONS (7)
  - Eye haemorrhage [Recovered/Resolved]
  - Constipation [Recovered/Resolved]
  - Abdominal distension [Unknown]
  - Abdominal discomfort [Unknown]
  - Contusion [Unknown]
  - Platelet count increased [Unknown]
  - Intentional product use issue [Unknown]
